FAERS Safety Report 19758196 (Version 1)
Quarter: 2021Q3

REPORT INFORMATION
  Report Type: Spontaneous
  Country: US (occurrence: US)
  Receive Date: 20210828
  Receipt Date: 20210828
  Transmission Date: 20211014
  Serious: No
  Sender: FDA-Public Use
  Company Number: US-ORGANON-O2108USA001450

PATIENT
  Sex: Female
  Weight: 75.74 kg

DRUGS (1)
  1. NEXPLANON [Suspect]
     Active Substance: ETONOGESTREL
     Dosage: 1 IMPLANT (68 MILLIGRAM EVERY 3 YEARS)
     Route: 059
     Dates: start: 20200113

REACTIONS (2)
  - Device breakage [Unknown]
  - No adverse event [Unknown]
